FAERS Safety Report 13790860 (Version 2)
Quarter: 2017Q3

REPORT INFORMATION
  Report Type: Spontaneous
  Country: JP (occurrence: JP)
  Receive Date: 20170725
  Receipt Date: 20170801
  Transmission Date: 20171127
  Serious: Yes (Other)
  Sender: FDA-Public Use
  Company Number: JP-BAYER-2017-141741

PATIENT
  Sex: Male
  Weight: 3.34 kg

DRUGS (2)
  1. ASPIRIN 100 % [Suspect]
     Active Substance: ASPIRIN
  2. HEPARIN [Suspect]
     Active Substance: HEPARIN SODIUM

REACTIONS (2)
  - Cerebral infarction foetal [None]
  - Foetal exposure timing unspecified [None]
